FAERS Safety Report 6194388-1 (Version None)
Quarter: 2009Q2

REPORT INFORMATION
  Report Type: 
  Country: None (occurrence: None)
  Receive Date: 20090519
  Receipt Date: 20090518
  Transmission Date: 20091009
  Serious: Yes (Other)
  Sender: FDA-Public Use
  Company Number: US-BAYER-200911223NA

PATIENT
  Age: 32 Year
  Sex: Female

DRUGS (2)
  1. MIRENA [Suspect]
     Indication: CONTRACEPTION
     Dosage: CONTINUOUS
     Route: 015
     Dates: start: 20070401
  2. MOTRIN [Concomitant]
     Indication: MYALGIA
     Route: 048

REACTIONS (3)
  - AMENORRHOEA [None]
  - DILATATION VENTRICULAR [None]
  - MYALGIA [None]
